FAERS Safety Report 12387597 (Version 2)
Quarter: 2016Q3

REPORT INFORMATION
  Report Type: Report from Study
  Country: CA (occurrence: CA)
  Receive Date: 20160520
  Receipt Date: 20160722
  Transmission Date: 20161109
  Serious: Yes (Hospitalization, Other)
  Sender: FDA-Public Use
  Company Number: CA-AMGEN-CANSL2016060772

PATIENT
  Sex: Female

DRUGS (1)
  1. REPATHA [Suspect]
     Active Substance: EVOLOCUMAB
     Indication: PRODUCT USED FOR UNKNOWN INDICATION
     Dosage: 140 MG/ML, UNK
     Route: 065
     Dates: start: 20160324, end: 20160505

REACTIONS (5)
  - Cough [Unknown]
  - Hospitalisation [Unknown]
  - Dyspnoea [Unknown]
  - Rhinorrhoea [Unknown]
  - Gout [Unknown]

NARRATIVE: CASE EVENT DATE: 2016
